FAERS Safety Report 4528445-X (Version None)
Quarter: 2004Q4

REPORT INFORMATION
  Report Type: 
  Country: None (occurrence: None)
  Receive Date: 20041216
  Receipt Date: 20041206
  Transmission Date: 20050328
  Serious: Yes (Other)
  Sender: FDA-Public Use
  Company Number: NO-ABBOTT-04P-122-0282548-00

PATIENT
  Age: 60 Year
  Sex: Male

DRUGS (1)
  1. HUMIRA [Suspect]
     Indication: RHEUMATOID ARTHRITIS
     Route: 058
     Dates: start: 20041015, end: 20041106

REACTIONS (4)
  - CEREBRAL HAEMORRHAGE [None]
  - DIZZINESS [None]
  - DROOLING [None]
  - HYPOAESTHESIA [None]
